FAERS Safety Report 6460412-1 (Version None)
Quarter: 2009Q4

REPORT INFORMATION
  Report Type: 
  Country: None (occurrence: None)
  Receive Date: 20091130
  Receipt Date: 20091105
  Transmission Date: 20100525
  Serious: No
  Sender: FDA-Public Use
  Company Number: BR-ROCHE-650087

PATIENT
  Sex: Female
  Weight: 3.9 kg

DRUGS (5)
  1. TAMIFLU [Suspect]
     Indication: H1N1 INFLUENZA
     Route: 064
     Dates: start: 20090804, end: 20090811
  2. ASCORBIC ACID [Concomitant]
     Route: 064
  3. VITAMIN E [Concomitant]
     Route: 064
  4. FOLIC ACID [Concomitant]
     Route: 064
  5. AMOCILLIN [Concomitant]
     Indication: SINUSITIS
     Route: 064
     Dates: start: 20090101, end: 20090101

REACTIONS (2)
  - NO ADVERSE EVENT [None]
  - NORMAL NEWBORN [None]
